FAERS Safety Report 9052490 (Version 2)
Quarter: 2013Q1

REPORT INFORMATION
  Report Type: Spontaneous
  Country: RO (occurrence: RO)
  Receive Date: 20130207
  Receipt Date: 20130219
  Transmission Date: 20140127
  Serious: Yes (Life-Threatening, Hospitalization)
  Sender: FDA-Public Use
  Company Number: RO-JNJFOC-20130200270

PATIENT
  Sex: Male

DRUGS (1)
  1. REMICADE [Suspect]
     Indication: ANKYLOSING SPONDYLITIS
     Dosage: 4 VIALS
     Route: 042
     Dates: start: 2009, end: 20120928

REACTIONS (4)
  - Pulmonary tuberculosis [Recovering/Resolving]
  - Hepatocellular injury [Unknown]
  - Cholestasis [Unknown]
  - Lobar pneumonia [Recovering/Resolving]
